FAERS Safety Report 4360796-4 (Version None)
Quarter: 2004Q2

REPORT INFORMATION
  Report Type: 
  Country: None (occurrence: None)
  Receive Date: 20040514
  Receipt Date: 20040503
  Transmission Date: 20050107
  Serious: Yes (Hospitalization, Disabling)
  Sender: FDA-Public Use
  Company Number: HQWYE568108APR03

PATIENT
  Age: 41 Year
  Sex: Female

DRUGS (1)
  1. DIMETAPP [Suspect]
     Dosage: PER PACKAGE INSTRUCTION, ORAL
     Route: 048
     Dates: end: 20000331

REACTIONS (2)
  - CEREBRAL HAEMORRHAGE [None]
  - PARALYSIS [None]
